FAERS Safety Report 8972624 (Version 1)
Quarter: 2012Q4

REPORT INFORMATION
  Report Type: 
  Country: IN (occurrence: IN)
  Receive Date: 20121219
  Receipt Date: 20121219
  Transmission Date: 20130627
  Serious: Yes (Other)
  Sender: FDA-Public Use
  Company Number: IN-SANOFI-AVENTIS-2012SA091191

PATIENT
  Sex: Female

DRUGS (9)
  1. PREDNISOLONE [Suspect]
     Indication: JUVENILE IDIOPATHIC ARTHRITIS
     Dosage: divided in 4 doses
     Route: 048
  2. PREDNISOLONE [Suspect]
     Indication: JUVENILE IDIOPATHIC ARTHRITIS
     Dosage: tapered over 2 weeks
     Route: 048
  3. PREDNISOLONE [Suspect]
     Indication: JUVENILE IDIOPATHIC ARTHRITIS
     Route: 048
  4. PREDNISOLONE [Suspect]
     Indication: JUVENILE IDIOPATHIC ARTHRITIS
     Route: 048
  5. LEFLUNOMIDE [Suspect]
     Indication: JUVENILE IDIOPATHIC ARTHRITIS
     Route: 065
  6. METHOTREXATE [Concomitant]
     Indication: JUVENILE IDIOPATHIC ARTHRITIS
     Route: 058
  7. METHOTREXATE [Concomitant]
     Indication: JUVENILE IDIOPATHIC ARTHRITIS
     Dosage: increased
     Route: 058
  8. HYDROXYCHLOROQUINE [Concomitant]
     Indication: JUVENILE IDIOPATHIC ARTHRITIS
  9. THALIDOMIDE [Concomitant]
     Indication: JUVENILE IDIOPATHIC ARTHRITIS

REACTIONS (4)
  - Failure to thrive [Unknown]
  - Lower respiratory tract infection [Unknown]
  - Hirsutism [Unknown]
  - Cushingoid [Unknown]
